FAERS Safety Report 5941313-1 (Version None)
Quarter: 2008Q4

REPORT INFORMATION
  Report Type: 
  Country: None (occurrence: None)
  Receive Date: 20081103
  Receipt Date: 20081103
  Transmission Date: 20090506
  Serious: Yes (Other)
  Sender: FDA-Public Use
  Company Number: None

PATIENT
  Age: 64 Year
  Sex: Female
  Weight: 109.7705 kg

DRUGS (2)
  1. HYDROCODONE BITARTRATE AND ACETAMINOPHEN [Suspect]
     Indication: CHOLELITHIASIS
     Dosage: 1/2 TABLET AS NEEDED EVERY 6 HRS PO
     Route: 048
     Dates: start: 20081023, end: 20081031
  2. HYDROCODONE BITARTRATE AND ACETAMINOPHEN [Suspect]
     Indication: PAIN
     Dosage: 1/2 TABLET AS NEEDED EVERY 6 HRS PO
     Route: 048
     Dates: start: 20081023, end: 20081031

REACTIONS (4)
  - MUSCULAR WEAKNESS [None]
  - PRURITUS GENERALISED [None]
  - RASH GENERALISED [None]
  - TINNITUS [None]
